FAERS Safety Report 4295317-8 (Version None)
Quarter: 2004Q1

REPORT INFORMATION
  Report Type: 
  Country: None (occurrence: None)
  Receive Date: 20040216
  Receipt Date: 20030602
  Transmission Date: 20041129
  Serious: No
  Sender: FDA-Public Use
  Company Number: US-GLAXOSMITHKLINE-A0410620A

PATIENT
  Age: 48 Year
  Sex: Male

DRUGS (4)
  1. LAMICTAL [Suspect]
     Dosage: 400MG PER DAY
     Route: 048
  2. WELLBUTRIN [Concomitant]
  3. ABILIFY [Concomitant]
  4. TOPAMAX [Concomitant]

REACTIONS (1)
  - DYSARTHRIA [None]
